FAERS Safety Report 4815059-7 (Version None)
Quarter: 2005Q4

REPORT INFORMATION
  Report Type: 
  Country: None (occurrence: None)
  Receive Date: 20051026
  Receipt Date: 20051010
  Transmission Date: 20060501
  Serious: Yes (Hospitalization)
  Sender: FDA-Public Use
  Company Number: GBS051018711

PATIENT
  Age: 25 Year
  Sex: Male

DRUGS (4)
  1. OLANZAPINE [Suspect]
     Indication: HUNTINGTON'S CHOREA
     Dosage: 5 MG
     Dates: start: 20050901
  2. OLANZAPINE [Suspect]
     Indication: PARANOIA
     Dosage: 5 MG
     Dates: start: 20050901
  3. CARBAMAZEPINE [Concomitant]
  4. HALOPERIDOL [Concomitant]

REACTIONS (1)
  - PULMONARY EMBOLISM [None]
